FAERS Safety Report 25261071 (Version 1)
Quarter: 2025Q2

REPORT INFORMATION
  Report Type: Spontaneous
  Country: NO (occurrence: NO)
  Receive Date: 20250501
  Receipt Date: 20250501
  Transmission Date: 20250717
  Serious: Yes (Disabling)
  Sender: ELI LILLY AND COMPANY
  Company Number: NO-ELI_LILLY_AND_COMPANY-NO202409008690

PATIENT
  Age: 66 Year
  Sex: Female

DRUGS (14)
  1. TALTZ [Suspect]
     Active Substance: IXEKIZUMAB
     Indication: Psoriatic arthropathy
     Route: 065
     Dates: start: 2003
  2. METHOTREXATE SODIUM [Suspect]
     Active Substance: METHOTREXATE SODIUM
     Indication: Product used for unknown indication
     Route: 065
     Dates: start: 2003
  3. AMITRIPTYLINE HYDROCHLORIDE [Suspect]
     Active Substance: AMITRIPTYLINE HYDROCHLORIDE
     Indication: Product used for unknown indication
     Route: 065
     Dates: start: 2003
  4. NYSTATIN [Suspect]
     Active Substance: NYSTATIN
     Indication: Product used for unknown indication
     Route: 065
     Dates: start: 2003
  5. METHOTREXATE [Concomitant]
     Active Substance: METHOTREXATE
     Indication: Psoriatic arthropathy
  6. ETANERCEPT [Concomitant]
     Active Substance: ETANERCEPT
     Indication: Psoriatic arthropathy
  7. ADALIMUMAB [Concomitant]
     Active Substance: ADALIMUMAB
     Indication: Psoriatic arthropathy
  8. INFLIXIMAB [Concomitant]
     Active Substance: INFLIXIMAB
     Indication: Psoriatic arthropathy
  9. ABATACEPT [Concomitant]
     Active Substance: ABATACEPT
     Indication: Psoriatic arthropathy
  10. LEFLUNOMIDE [Concomitant]
     Active Substance: LEFLUNOMIDE
     Indication: Psoriatic arthropathy
  11. GOLIMUMAB [Concomitant]
     Active Substance: GOLIMUMAB
     Indication: Psoriatic arthropathy
  12. CERTOLIZUMAB [Concomitant]
     Active Substance: CERTOLIZUMAB
     Indication: Psoriatic arthropathy
  13. SECUKINUMAB [Concomitant]
     Active Substance: SECUKINUMAB
     Indication: Psoriatic arthropathy
  14. USTEKINUMAB [Concomitant]
     Active Substance: USTEKINUMAB
     Indication: Psoriatic arthropathy

REACTIONS (3)
  - Psoriatic arthropathy [Unknown]
  - Tooth fracture [Unknown]
  - Dental caries [Unknown]

NARRATIVE: CASE EVENT DATE: 20230101
